FAERS Safety Report 9630640 (Version 2)
Quarter: 2014Q1

REPORT INFORMATION
  Report Type: Spontaneous
  Country: US (occurrence: None)
  Receive Date: 20131015
  Receipt Date: 20140219
  Transmission Date: 20141002
  Serious: Yes (Hospitalization)
  Sender: FDA-Public Use
  Company Number: IPC201310-000389

PATIENT
  Age: 59 Year
  Sex: Female
  Weight: 97.5 kg

DRUGS (10)
  1. METOPROLOL TARTRATE [Suspect]
  2. TRAMADOL [Suspect]
     Indication: PAIN
     Route: 048
  3. WARFARIN [Suspect]
     Indication: BLOOD DISORDER
  4. PROTONIX [Suspect]
  5. CELEBREX [Suspect]
     Indication: SPINAL OSTEOARTHRITIS
     Route: 048
  6. PRAVASTATIN SODIUM [Suspect]
     Indication: BLOOD CHOLESTEROL INCREASED
     Dates: end: 2013
  7. LEVOTHYROXINE SODIUM [Suspect]
     Indication: THYROID DISORDER
  8. TEMAZEPAM [Suspect]
     Indication: INSOMNIA
     Dosage: 30MG AS REQUIRED
  9. TYLENOL [Suspect]
  10. HYDROCHLOROTHIAZIDE/TRIAMTERENE [Suspect]
     Indication: DIURETIC THERAPY
     Dosage: 37.5/25MG, ONCE A DAY, ORAL
     Route: 048
     Dates: start: 201303

REACTIONS (5)
  - Blood potassium decreased [None]
  - Blood cholesterol increased [None]
  - Drug interaction [None]
  - Drug effect decreased [None]
  - Musculoskeletal stiffness [None]
